FAERS Safety Report 4606022-X (Version None)
Quarter: 2005Q2

REPORT INFORMATION
  Report Type: 
  Country: None (occurrence: None)
  Receive Date: 20050303
  Receipt Date: 20041102
  Transmission Date: 20051028
  Serious: No
  Sender: FDA-Public Use
  Company Number: 200420941BWH

PATIENT
  Age: 73 Year
  Sex: Male

DRUGS (3)
  1. LEVITRA [Suspect]
     Dosage: ORAL
     Route: 048
  2. ATENOLOL [Concomitant]
  3. MAXZIDE [Concomitant]

REACTIONS (1)
  - FEELING ABNORMAL [None]
